FAERS Safety Report 9272345 (Version 1)
Quarter: 2013Q2

REPORT INFORMATION
  Report Type: Spontaneous
  Country: US (occurrence: US)
  Receive Date: 20130506
  Receipt Date: 20130506
  Transmission Date: 20140414
  Serious: No
  Sender: FDA-Public Use
  Company Number: US-TEVA-403194USA

PATIENT
  Age: 28 Year
  Sex: Female
  Weight: 113.5 kg

DRUGS (3)
  1. PLAN B ONE-STEP [Suspect]
     Indication: POST COITAL CONTRACEPTION
     Dosage: 1.5 MILLIGRAM DAILY;
     Route: 048
     Dates: start: 20130305, end: 20130305
  2. ATENOLOL [Concomitant]
     Indication: HYPERTENSION
  3. SIMVASTANTIN [Concomitant]
     Indication: HYPERLIPIDAEMIA

REACTIONS (2)
  - Breast discomfort [Not Recovered/Not Resolved]
  - Menstruation delayed [Not Recovered/Not Resolved]
